FAERS Safety Report 21661754 (Version 1)
Quarter: 2022Q4

REPORT INFORMATION
  Report Type: Report from Study
  Country: CA (occurrence: CA)
  Receive Date: 20221130
  Receipt Date: 20221130
  Transmission Date: 20230112
  Serious: Yes (Other)
  Sender: FDA-Public Use
  Company Number: CA-JNJFOC-20221164043

PATIENT
  Age: 40 Year
  Sex: Female

DRUGS (3)
  1. REMICADE [Suspect]
     Active Substance: INFLIXIMAB
     Indication: Product used for unknown indication
     Route: 042
  2. TYPHOID VACCINE [Concomitant]
     Active Substance: TYPHOID VACCINE
     Indication: Product used for unknown indication
     Dosage: NON-LIVE VACCINE
     Route: 065
     Dates: start: 20220928
  3. HEPATITIS B VIRUS VACCINE [Concomitant]
     Active Substance: HEPATITIS B VIRUS VACCINE
     Indication: Product used for unknown indication
     Dosage: NON-LIVE VACCINE
     Route: 065
     Dates: start: 20220928

REACTIONS (2)
  - Typhoid fever [Recovering/Resolving]
  - Infection [Recovering/Resolving]

NARRATIVE: CASE EVENT DATE: 20220101
